FAERS Safety Report 7497684-0 (Version None)
Quarter: 2011Q2

REPORT INFORMATION
  Report Type: 
  Country: None (occurrence: None)
  Receive Date: 20110523
  Receipt Date: 20110519
  Transmission Date: 20111010
  Serious: Yes (Death, Hospitalization)
  Sender: FDA-Public Use
  Company Number: IN-PFIZER INC-A107393

PATIENT
  Age: 59 Year
  Sex: Female

DRUGS (3)
  1. CORDARONE [Interacting]
  2. SINTROM [Interacting]
     Route: 048
  3. AZITHROMYCIN [Suspect]
     Route: 048

REACTIONS (3)
  - CARDIAC FAILURE CONGESTIVE [None]
  - HAEMORRHAGE [None]
  - DRUG INTERACTION [None]
